FAERS Safety Report 25988317 (Version 1)
Quarter: 2025Q4

REPORT INFORMATION
  Report Type: Spontaneous
  Country: GB (occurrence: GB)
  Receive Date: 20251103
  Receipt Date: 20251103
  Transmission Date: 20260119
  Serious: Yes (Death, Other)
  Sender: HIKMA
  Company Number: GB-MHRA-37371239

PATIENT
  Age: 76 Year

DRUGS (1)
  1. ACYCLOVIR [Suspect]
     Active Substance: ACYCLOVIR
     Indication: Herpes zoster
     Dosage: UNKNOWN
     Route: 065

REACTIONS (2)
  - Seizure [Fatal]
  - Accidental overdose [Unknown]

NARRATIVE: CASE EVENT DATE: 20251008
